FAERS Safety Report 10550984 (Version 3)
Quarter: 2015Q2

REPORT INFORMATION
  Report Type: Spontaneous
  Country: US (occurrence: None)
  Receive Date: 20141020
  Receipt Date: 20150420
  Transmission Date: 20150821
  Serious: No
  Sender: FDA-Public Use
  Company Number: AEGR000601

PATIENT
  Age: 83 Year
  Sex: Male
  Weight: 101.6 kg

DRUGS (6)
  1. JUXTAPID [Suspect]
     Active Substance: LOMITAPIDE MESYLATE
     Indication: BLOOD CHOLESTEROL INCREASED
     Route: 048
     Dates: start: 20131216, end: 2014
  2. ATENOLOL. [Concomitant]
     Active Substance: ATENOLOL
  3. MULTIVITAMIN (VITAMINS NOS) [Concomitant]
     Active Substance: VITAMINS
  4. VITAMIN E (TOCOPHERYL ACETATE) [Concomitant]
  5. ASPIRIN (ACETYLSALICYLIC ACID) [Concomitant]
     Active Substance: ASPIRIN
  6. ZETIA [Concomitant]
     Active Substance: EZETIMIBE

REACTIONS (3)
  - Off label use [None]
  - Diarrhoea [None]
  - Faeces soft [None]

NARRATIVE: CASE EVENT DATE: 20140711
